FAERS Safety Report 6426856-9 (Version None)
Quarter: 2009Q4

REPORT INFORMATION
  Report Type: 
  Country: None (occurrence: None)
  Receive Date: 20091103
  Receipt Date: 20091103
  Transmission Date: 20100525
  Serious: No
  Sender: FDA-Public Use
  Company Number: None

PATIENT
  Age: 59 Year
  Sex: Male

DRUGS (1)
  1. LISINOPRIL AND HYDROCHLOROTHIAZIDE [Suspect]
     Dosage: 25/40 MG EVERY DAY PO
     Route: 048
     Dates: start: 20080507, end: 20080630

REACTIONS (4)
  - ANGIOEDEMA [None]
  - NAUSEA [None]
  - RASH [None]
  - VOMITING [None]
